FAERS Safety Report 4395612-8 (Version None)
Quarter: 2004Q3

REPORT INFORMATION
  Report Type: 
  Country: None (occurrence: None)
  Receive Date: 20040708
  Receipt Date: 20040624
  Transmission Date: 20050211
  Serious: Yes (Hospitalization)
  Sender: FDA-Public Use
  Company Number: 2004220787US

PATIENT
  Age: 81 Year
  Sex: Female

DRUGS (3)
  1. CELEBREX [Suspect]
  2. TAMOXIFEN [Concomitant]
  3. NAPROXEN [Concomitant]

REACTIONS (5)
  - BREAST CANCER METASTATIC [None]
  - DIFFUSE ALVEOLAR DAMAGE [None]
  - DRUG TOXICITY [None]
  - INTERSTITIAL LUNG DISEASE [None]
  - METASTASES TO LYMPH NODES [None]
